FAERS Safety Report 4954175-6 (Version None)
Quarter: 2006Q1

REPORT INFORMATION
  Report Type: 
  Country: None (occurrence: None)
  Receive Date: 20060327
  Receipt Date: 20050414
  Transmission Date: 20060701
  Serious: Yes (Hospitalization)
  Sender: FDA-Public Use
  Company Number: US-MERCK-0504USA02970

PATIENT
  Age: 50 Year
  Sex: Female
  Weight: 125 kg

DRUGS (2)
  1. VIOXX [Suspect]
     Indication: MONARTHRITIS
     Route: 048
     Dates: start: 20030601, end: 20040201
  2. ALBUTEROL [Concomitant]
     Route: 065

REACTIONS (8)
  - ASTHMA [None]
  - CARDIAC FAILURE CONGESTIVE [None]
  - HEADACHE [None]
  - INJURY [None]
  - LUNG INFECTION [None]
  - MIGRAINE [None]
  - PALPITATIONS [None]
  - PANIC ATTACK [None]
